FAERS Safety Report 10732638 (Version 1)
Quarter: 2015Q1

REPORT INFORMATION
  Report Type: Spontaneous
  Country: US (occurrence: None)
  Receive Date: 20150120
  Receipt Date: 20150120
  Transmission Date: 20150721
  Serious: Yes (Hospitalization)
  Sender: FDA-Public Use
  Company Number: COL_18929_2015

PATIENT
  Sex: Female

DRUGS (1)
  1. PEROXYL [Suspect]
     Active Substance: HYDROGEN PEROXIDE
     Dosage: 1. 5 G/100 ML HYDROGEN PEROXIDE
     Route: 048
     Dates: start: 201501, end: 201501

REACTIONS (3)
  - Oral discomfort [None]
  - Stomatitis [None]
  - Lung disorder [None]

NARRATIVE: CASE EVENT DATE: 201501
